FAERS Safety Report 11259866 (Version 1)
Quarter: 2015Q3

REPORT INFORMATION
  Report Type: Spontaneous
  Country: US (occurrence: US)
  Receive Date: 20150710
  Receipt Date: 20150710
  Transmission Date: 20151125
  Serious: No
  Sender: FDA-Public Use
  Company Number: US-PURDUE-USA-2014-0118529

PATIENT
  Age: 68 Year
  Sex: Female

DRUGS (2)
  1. MORPHINE SULFATE (SIMILAR TO NDA 19-516) [Suspect]
     Active Substance: MORPHINE SULFATE
     Indication: HERPES ZOSTER
     Dosage: 15 MG, BID
     Route: 048
     Dates: start: 20141010, end: 20141013
  2. BUTRANS [Suspect]
     Active Substance: BUPRENORPHINE
     Indication: HERPES ZOSTER
     Dosage: 20 MCG/HR, WEEKLY
     Route: 062
     Dates: start: 20141020

REACTIONS (1)
  - Drug ineffective [Not Recovered/Not Resolved]

NARRATIVE: CASE EVENT DATE: 201410
